FAERS Safety Report 5612135-6 (Version None)
Quarter: 2008Q1

REPORT INFORMATION
  Report Type: 
  Country: None (occurrence: None)
  Receive Date: 20080204
  Receipt Date: 20080131
  Transmission Date: 20080703
  Serious: Yes (Death)
  Sender: FDA-Public Use
  Company Number: PHNU2008DE00799

PATIENT
  Age: 72 Year
  Sex: Male

DRUGS (2)
  1. RASILEZ [Suspect]
     Indication: HYPERTENSION
  2. CELEBREX [Concomitant]

REACTIONS (2)
  - CARDIAC ARREST [None]
  - RESUSCITATION [None]
